FAERS Safety Report 12281560 (Version 5)
Quarter: 2016Q2

REPORT INFORMATION
  Report Type: Report from Study
  Country: BR (occurrence: BR)
  Receive Date: 20160419
  Receipt Date: 20160606
  Transmission Date: 20160815
  Serious: Yes (Death, Hospitalization, Disabling)
  Sender: FDA-Public Use
  Company Number: BR-B.I. PHARMACEUTICALS,INC./RIDGEFIELD-2016-BI-23572BR

PATIENT
  Age: 76 Year
  Sex: Female
  Weight: 75 kg

DRUGS (17)
  1. AZITHROMICINA [Concomitant]
     Indication: INFECTION PROPHYLAXIS
     Dosage: HALF TABLET ON MONDAY, WEDNESDAY AND FRIDAYS DURING THE MORNING
     Route: 048
  2. MEMANTINA [Concomitant]
     Active Substance: MEMANTINE HYDROCHLORIDE
     Indication: DEMENTIA ALZHEIMER^S TYPE
     Dosage: 20 MG
     Route: 048
  3. DONILA [Concomitant]
     Active Substance: DONEPEZIL HYDROCHLORIDE
     Indication: DEMENTIA ALZHEIMER^S TYPE
     Dosage: 10 MG
     Route: 048
  4. LOSARTANA [Concomitant]
     Active Substance: LOSARTAN
     Indication: DIURETIC THERAPY
     Dosage: 50 MG
     Route: 048
  5. DIGELIV [Concomitant]
     Indication: DYSPEPSIA
     Dosage: 2 G
     Route: 048
  6. OFEV [Suspect]
     Active Substance: NINTEDANIB
     Indication: IDIOPATHIC PULMONARY FIBROSIS
     Dosage: 300 MG
     Route: 048
     Dates: start: 20160229, end: 201604
  7. TORLOZ H [Concomitant]
     Indication: HYPERTENSION
     Dosage: DOSE PER APPLICATION AND DAILY DOSE - 50/12.5MG
     Route: 048
  8. RETEMIC [Concomitant]
     Active Substance: OXYBUTYNIN CHLORIDE
     Indication: URINARY INCONTINENCE
     Dosage: 5 MG
     Route: 048
  9. TECTA [Concomitant]
     Active Substance: PANTOPRAZOLE MAGNESIUM
     Indication: GASTROOESOPHAGEAL REFLUX DISEASE
  10. LEXAPRO [Concomitant]
     Active Substance: ESCITALOPRAM OXALATE
     Indication: DEPRESSION
     Dosage: 10 MG
     Route: 048
  11. JARDIANCE [Concomitant]
     Active Substance: EMPAGLIFLOZIN
     Indication: TYPE 2 DIABETES MELLITUS
     Dosage: 25 MG
     Route: 048
  12. TECTA [Concomitant]
     Active Substance: PANTOPRAZOLE MAGNESIUM
     Indication: GASTRITIS
     Dosage: 80 MG
     Route: 048
  13. ATORVASTATINA [Concomitant]
     Active Substance: ATORVASTATIN
     Indication: BLOOD CHOLESTEROL INCREASED
     Dosage: 10 MG
     Route: 048
  14. DIGESAN [Concomitant]
     Active Substance: BROMOPRIDE
     Indication: DYSPEPSIA
     Dosage: 20 MG
     Route: 048
  15. ACETILCISTEINA [Concomitant]
     Active Substance: ACETYLCYSTEINE
     Indication: PRODUCTIVE COUGH
     Dosage: 600 MG
     Route: 048
  16. LABIRIN [Concomitant]
     Active Substance: BETAHISTINE
     Indication: LABYRINTHITIS
     Dosage: 16 MG
     Route: 048
  17. INDAPEN [Concomitant]
     Active Substance: INDAPAMIDE
     Indication: DIURETIC THERAPY
     Dosage: 1.5 MG
     Route: 048

REACTIONS (6)
  - Pyrexia [Recovered/Resolved]
  - Pulmonary thrombosis [Unknown]
  - Acute respiratory failure [Fatal]
  - Diabetes mellitus [Fatal]
  - Diarrhoea [Not Recovered/Not Resolved]
  - Decreased appetite [Not Recovered/Not Resolved]

NARRATIVE: CASE EVENT DATE: 20160302
